FAERS Safety Report 21943422 (Version 1)
Quarter: 2023Q1

REPORT INFORMATION
  Report Type: Spontaneous
  Country: GB (occurrence: GB)
  Receive Date: 20230202
  Receipt Date: 20230202
  Transmission Date: 20230418
  Serious: Yes (Other)
  Sender: FDA-Public Use
  Company Number: None

PATIENT
  Age: 73 Year
  Sex: Female
  Weight: 115 kg

DRUGS (12)
  1. AMITRIPTYLINE HYDROCHLORIDE [Suspect]
     Active Substance: AMITRIPTYLINE HYDROCHLORIDE
     Indication: Product used for unknown indication
     Dosage: TAKE ONE OR TWO AT NIGHT
     Route: 048
     Dates: start: 20220914
  2. CANDESARTAN [Concomitant]
     Active Substance: CANDESARTAN
     Dates: start: 20230123
  3. COCODAMOL [Concomitant]
     Active Substance: ACETAMINOPHEN\CODEINE PHOSPHATE
     Indication: Pain
     Dosage: AS NECESSARY, 4 TIMES/DAY FOR PAIN - CAUTION ADDICTIVE - USE MINIMUM DOSE REQUIRED
     Dates: start: 20230123
  4. MEBEVERINE HYDROCHLORIDE [Concomitant]
     Active Substance: MEBEVERINE HYDROCHLORIDE
     Dates: start: 20211208, end: 20221122
  5. POTASSIUM BICARBONATE\SODIUM ALGINATE [Concomitant]
     Active Substance: POTASSIUM BICARBONATE\SODIUM ALGINATE
     Dosage: AS NECESSARY, TWICE PER DAY WITH WATER
     Dates: start: 20211208
  6. Hylo-Tear [Concomitant]
     Dosage: AS NECESSARY, APPLY
     Dates: start: 20211208
  7. HYALURONATE SODIUM [Concomitant]
     Active Substance: HYALURONATE SODIUM
     Indication: Dry eye
     Dosage: APPLY UP TO 6 TIMES A DAY
     Dates: start: 20211208
  8. LOSARTAN [Concomitant]
     Active Substance: LOSARTAN
     Dates: start: 20220610, end: 20230123
  9. NYSTATIN [Concomitant]
     Active Substance: NYSTATIN
     Dosage: APPLY HALF OF DOSE IN EA
     Dates: start: 20221228, end: 20230111
  10. PENICILLIN V [Concomitant]
     Active Substance: PENICILLIN V
     Dates: start: 20221228, end: 20230107
  11. ALBUTEROL [Concomitant]
     Active Substance: ALBUTEROL
     Dosage: TWO PUFFS-FOUR PUFFS TO BE INHALED FOUR TIMES A
     Route: 055
     Dates: start: 20211208, end: 20221122
  12. SYMBICORT [Concomitant]
     Active Substance: BUDESONIDE\FORMOTEROL FUMARATE DIHYDRATE
     Dosage: ONE SUCK BD THEN RE
     Dates: start: 20211208, end: 20221122

REACTIONS (3)
  - Memory impairment [Not Recovered/Not Resolved]
  - Sedation [Unknown]
  - Balance disorder [Unknown]
